FAERS Safety Report 10524053 (Version 1)
Quarter: 2014Q4

REPORT INFORMATION
  Report Type: Spontaneous
  Country: US (occurrence: None)
  Receive Date: 20141015
  Receipt Date: 20141015
  Transmission Date: 20150528
  Serious: No
  Sender: FDA-Public Use
  Company Number: None

PATIENT
  Age: 63 Year
  Sex: Female

DRUGS (1)
  1. NEUPOGEN [Suspect]
     Active Substance: FILGRASTIM
     Indication: NEUTROPENIA
     Dosage: QD X 5-8 D^S
     Route: 058
     Dates: start: 20140805

REACTIONS (2)
  - Device physical property issue [None]
  - Injury associated with device [None]

NARRATIVE: CASE EVENT DATE: 20140927
